FAERS Safety Report 17709762 (Version 1)
Quarter: 2020Q2

REPORT INFORMATION
  Report Type: Spontaneous
  Country: JP (occurrence: JP)
  Receive Date: 20200427
  Receipt Date: 20200427
  Transmission Date: 20200714
  Serious: Yes (Other)
  Sender: FDA-Public Use
  Company Number: JP-SUN PHARMACEUTICAL INDUSTRIES LTD-2020RR-245088

PATIENT
  Age: 48 Year
  Sex: Female

DRUGS (6)
  1. SILDENAFIL. [Suspect]
     Active Substance: SILDENAFIL
     Indication: POLYARTERITIS NODOSA
     Dosage: UNK
     Route: 065
  2. WARFARIN [Suspect]
     Active Substance: WARFARIN
     Indication: POLYARTERITIS NODOSA
     Route: 065
  3. CYCLOPHOSPHAMIDE. [Suspect]
     Active Substance: CYCLOPHOSPHAMIDE
     Indication: POLYARTERITIS NODOSA
     Route: 042
  4. METHYLPREDNISOLONE. [Suspect]
     Active Substance: METHYLPREDNISOLONE
     Indication: POLYARTERITIS NODOSA
     Dosage: PULSE THERAPY
     Route: 042
  5. SARPOGRELATE HYDROCHLORIDE [Suspect]
     Active Substance: SARPOGRELATE HYDROCHLORIDE
     Indication: POLYARTERITIS NODOSA
     Dosage: UNK
     Route: 065
  6. BOSENTAN. [Suspect]
     Active Substance: BOSENTAN
     Indication: POLYARTERITIS NODOSA
     Dosage: UNK
     Route: 065

REACTIONS (2)
  - Drug ineffective [Unknown]
  - Therapy partial responder [Unknown]
